FAERS Safety Report 8455663 (Version 2)
Quarter: 2013Q1

REPORT INFORMATION
  Report Type: Spontaneous
  Country: US (occurrence: US)
  Receive Date: 20120313
  Receipt Date: 20130325
  Transmission Date: 20140127
  Serious: Yes (Other)
  Sender: FDA-Public Use
  Company Number: US-PFIZER INC-2012062384

PATIENT
  Age: 90 Year
  Sex: Female

DRUGS (7)
  1. PREMARIN [Suspect]
     Dosage: 0.625 MG, 1X/DAY
     Route: 048
  2. LASIX [Concomitant]
     Dosage: UNK
  3. KETOPROFEN [Concomitant]
     Dosage: UNK
  4. COREG [Concomitant]
     Dosage: UNK
  5. REMERON [Concomitant]
     Dosage: UNK
  6. ATIVAN [Concomitant]
     Dosage: UNK
  7. CARAFATE [Concomitant]
     Dosage: UNK

REACTIONS (2)
  - Cardiac disorder [Unknown]
  - Feeling abnormal [Unknown]
